FAERS Safety Report 16269381 (Version 1)
Quarter: 2019Q2

REPORT INFORMATION
  Report Type: Spontaneous
  Country: US (occurrence: US)
  Receive Date: 20190502
  Receipt Date: 20190502
  Transmission Date: 20190711
  Serious: Yes (Hospitalization)
  Sender: FDA-Public Use
  Company Number: None

PATIENT
  Age: 65 Year
  Weight: 57.6 kg

DRUGS (2)
  1. VITAMIN D [Concomitant]
     Active Substance: VITAMIN D NOS
  2. ZETIA [Suspect]
     Active Substance: EZETIMIBE
     Indication: HYPERLIPIDAEMIA
     Route: 048
     Dates: start: 20190404, end: 20190420

REACTIONS (5)
  - Dialysis [None]
  - Asthenia [None]
  - Rhabdomyolysis [None]
  - Acute kidney injury [None]
  - Myalgia [None]

NARRATIVE: CASE EVENT DATE: 20190423
